FAERS Safety Report 6088032-1 (Version None)
Quarter: 2009Q1

REPORT INFORMATION
  Report Type: 
  Country: None (occurrence: None)
  Receive Date: 20090217
  Receipt Date: 20090129
  Transmission Date: 20090719
  Serious: Yes (Hospitalization, Other)
  Sender: FDA-Public Use
  Company Number: US-JNJFOC-20090203319

PATIENT
  Age: 51 Year
  Sex: Male

DRUGS (2)
  1. DACOGEN [Suspect]
     Indication: ACUTE MYELOID LEUKAEMIA
     Dosage: 7 CYCLES
     Dates: start: 20080901
  2. MYLOTARG [Suspect]
     Indication: ACUTE MYELOID LEUKAEMIA

REACTIONS (4)
  - CHRONIC SINUSITIS [None]
  - EAR DISORDER [None]
  - NERVE INJURY [None]
  - VENOOCCLUSIVE DISEASE [None]
